FAERS Safety Report 7131952-7 (Version None)
Quarter: 2010Q4

REPORT INFORMATION
  Report Type: 
  Country: None (occurrence: None)
  Receive Date: 20101202
  Receipt Date: 20101122
  Transmission Date: 20110411
  Serious: Yes (Life-Threatening)
  Sender: FDA-Public Use
  Company Number: JP-BAXTER-2010BH028176

PATIENT
  Age: 75 Year
  Sex: Male
  Weight: 52 kg

DRUGS (2)
  1. FEIBA [Suspect]
     Indication: HAEMOSTASIS
     Route: 042
     Dates: start: 20101115, end: 20101115
  2. FEIBA [Suspect]
     Indication: ACQUIRED HAEMOPHILIA
     Route: 042
     Dates: start: 20101115, end: 20101115

REACTIONS (1)
  - ANAPHYLACTIC SHOCK [None]
